FAERS Safety Report 7959880-5 (Version None)
Quarter: 2011Q4

REPORT INFORMATION
  Report Type: 
  Country: None (occurrence: None)
  Receive Date: 20111206
  Receipt Date: 20111122
  Transmission Date: 20120403
  Serious: Yes (Hospitalization, Disabling)
  Sender: FDA-Public Use
  Company Number: PHHY2011FR104790

PATIENT
  Sex: Female

DRUGS (6)
  1. METFORMIN HCL [Concomitant]
     Dates: start: 20081201, end: 20090201
  2. ENALAPRIL MALEATE [Suspect]
     Indication: HYPERTENSION
     Dosage: 5 MG
     Route: 048
     Dates: start: 20070101, end: 20110301
  3. REPAGLINIDE [Concomitant]
     Indication: TYPE 2 DIABETES MELLITUS
     Dosage: 2 MG
     Dates: start: 20090201, end: 20110101
  4. CHLORAMINOPHENE [Suspect]
     Dosage: 2 MG, QD
     Route: 048
     Dates: start: 20090824, end: 20100301
  5. FLUVASTATIN SODIUM [Suspect]
     Indication: DYSLIPIDAEMIA
     Dosage: 40 MG
     Route: 048
     Dates: start: 20070101, end: 20110201
  6. CHLORAMINOPHENE [Suspect]
     Indication: CHRONIC LYMPHOCYTIC LEUKAEMIA
     Dosage: 2 MG
     Route: 048
     Dates: start: 19900101, end: 19940101

REACTIONS (4)
  - BRONCHOPNEUMOPATHY [None]
  - PULMONARY EMBOLISM [None]
  - ACUTE RESPIRATORY FAILURE [None]
  - PULMONARY FIBROSIS [None]
